FAERS Safety Report 15229134 (Version 1)
Quarter: 2018Q3

REPORT INFORMATION
  Report Type: Spontaneous
  Country: US (occurrence: US)
  Receive Date: 20180707
  Receipt Date: 20180707
  Transmission Date: 20181010
  Serious: Yes (Disabling, Other)
  Sender: FDA-Public Use
  Company Number: None

PATIENT
  Age: 68 Year
  Sex: Female
  Weight: 58.5 kg

DRUGS (1)
  1. PROLIA [Suspect]
     Active Substance: DENOSUMAB
     Indication: OSTEOPOROSIS
     Dosage: ?          OTHER FREQUENCY:EVERY 6 MONTHS;OTHER ROUTE:SUBCUTANEOUS INJECTION?
     Dates: start: 20170726, end: 20180701

REACTIONS (12)
  - Skin exfoliation [None]
  - Myalgia [None]
  - Therapy cessation [None]
  - Cystitis [None]
  - Abdominal pain [None]
  - Rash [None]
  - Tooth disorder [None]
  - Somnolence [None]
  - Dental plaque [None]
  - Dry skin [None]
  - Fatigue [None]
  - Arthralgia [None]

NARRATIVE: CASE EVENT DATE: 20170801
